FAERS Safety Report 5527332-8 (Version None)
Quarter: 2007Q4

REPORT INFORMATION
  Report Type: 
  Country: None (occurrence: None)
  Receive Date: 20071128
  Receipt Date: 20071116
  Transmission Date: 20080405
  Serious: Yes (Hospitalization)
  Sender: FDA-Public Use
  Company Number: B0496539A

PATIENT
  Age: 27 Year
  Sex: Female

DRUGS (1)
  1. AUGMENTIN '125' [Suspect]
     Indication: URINARY TRACT INFECTION
     Dosage: 1TAB PER DAY
     Route: 048
     Dates: start: 20070129, end: 20070129

REACTIONS (7)
  - ANAPHYLACTIC SHOCK [None]
  - BRADYCARDIA [None]
  - DIARRHOEA [None]
  - HYPOTENSION [None]
  - MALAISE [None]
  - URTICARIA [None]
  - VOMITING [None]
